FAERS Safety Report 8896205 (Version 2)
Quarter: 2013Q2

REPORT INFORMATION
  Report Type: Report from Study
  Country: DE (occurrence: DE)
  Receive Date: 20121108
  Receipt Date: 20130624
  Transmission Date: 20140414
  Serious: Yes (Other)
  Sender: FDA-Public Use
  Company Number: PHHY2012DE102214

PATIENT
  Sex: Male

DRUGS (4)
  1. FTY 720 [Suspect]
     Dosage: 0.5 MG, QD
     Route: 048
     Dates: start: 20120815
  2. FAMPYRA [Concomitant]
     Indication: MULTIPLE SCLEROSIS
     Dosage: 2 DF, QD
     Route: 048
     Dates: start: 201112, end: 20121009
  3. BACLOFEN [Concomitant]
     Indication: MULTIPLE SCLEROSIS
     Dosage: 1 DF, QD
     Dates: start: 200703
  4. RAMIPRIL [Concomitant]
     Dosage: 2.5 MG, UNK
     Dates: start: 2007

REACTIONS (1)
  - Atrial fibrillation [Recovered/Resolved]
